FAERS Safety Report 6521723-4 (Version None)
Quarter: 2009Q4

REPORT INFORMATION
  Report Type: 
  Country: None (occurrence: None)
  Receive Date: 20091230
  Receipt Date: 20091218
  Transmission Date: 20100525
  Serious: Yes (Life-Threatening, Hospitalization)
  Sender: FDA-Public Use
  Company Number: GB-PFIZER INC-2009311897

PATIENT
  Age: 23 Year
  Sex: Female

DRUGS (6)
  1. SERTRALINE HCL [Suspect]
     Route: 065
  2. AMOXICILLIN AND AMOXICILLIN TRIHYDRATE [Suspect]
     Route: 065
  3. CLOZAPINE [Suspect]
     Indication: SCHIZOPHRENIA
     Dosage: UNK
     Route: 048
     Dates: start: 20030623, end: 20060504
  4. HYOSCINE [Suspect]
     Route: 065
  5. MOCLOBEMIDE [Concomitant]
     Indication: DEPRESSION
     Route: 048
  6. SULPIRIDE [Concomitant]
     Indication: SCHIZOPHRENIA
     Route: 048

REACTIONS (8)
  - ALANINE AMINOTRANSFERASE INCREASED [None]
  - HAEMOGLOBIN DECREASED [None]
  - LIVER FUNCTION TEST ABNORMAL [None]
  - LOSS OF CONSCIOUSNESS [None]
  - MULTIPLE DRUG OVERDOSE [None]
  - OVERDOSE [None]
  - VOMITING [None]
  - WEIGHT DECREASED [None]
